FAERS Safety Report 7296145-1 (Version None)
Quarter: 2011Q1

REPORT INFORMATION
  Report Type: 
  Country: None (occurrence: None)
  Receive Date: 20110211
  Receipt Date: 20110211
  Transmission Date: 20110831
  Serious: Yes (Death, Other)
  Sender: FDA-Public Use
  Company Number: None

PATIENT
  Age: 61 Year
  Sex: Female
  Weight: 90.7194 kg

DRUGS (2)
  1. FENTANYL-100 [Suspect]
     Dosage: 25 TO 100 MCG
     Dates: start: 20081001
  2. FENTANYL-100 [Suspect]
     Dates: start: 20090101

REACTIONS (5)
  - BLOOD PRESSURE ABNORMAL [None]
  - PERFORMANCE STATUS DECREASED [None]
  - BRAIN DEATH [None]
  - COMA [None]
  - CARDIAC ARREST [None]
